FAERS Safety Report 10758900 (Version 2)
Quarter: 2015Q1

REPORT INFORMATION
  Report Type: Spontaneous
  Country: US (occurrence: US)
  Receive Date: 20150203
  Receipt Date: 20150323
  Transmission Date: 20150721
  Serious: Yes (Other)
  Sender: FDA-Public Use
  Company Number: US-PFIZER INC-2015037965

PATIENT
  Age: 56 Year
  Sex: Female
  Weight: 54 kg

DRUGS (3)
  1. ESTRING [Suspect]
     Active Substance: ESTRADIOL
     Dosage: UNK
     Dates: start: 20141231, end: 201501
  2. ESTRING [Suspect]
     Active Substance: ESTRADIOL
     Indication: MENOPAUSAL SYMPTOMS
     Dosage: UNK
     Dates: start: 20141001
  3. ESTRACE [Suspect]
     Active Substance: ESTRADIOL
     Indication: MENOPAUSAL SYMPTOMS
     Dosage: 1 G, 2X/WEEK
     Dates: end: 201405

REACTIONS (17)
  - Vulvovaginal pain [Recovered/Resolved]
  - Vulvovaginal discomfort [Recovered/Resolved]
  - Confusional state [Recovered/Resolved]
  - Headache [Recovered/Resolved]
  - Amnesia [Recovering/Resolving]
  - Vision blurred [Recovered/Resolved]
  - Vaginal odour [Recovered/Resolved]
  - Disease progression [Recovering/Resolving]
  - Weight increased [Recovered/Resolved]
  - Tremor [Recovered/Resolved]
  - Dysarthria [Recovered/Resolved]
  - Disease progression [Recovered/Resolved]
  - Vaginal haemorrhage [Recovered/Resolved]
  - Muscle twitching [Recovered/Resolved]
  - Drug ineffective [Recovering/Resolving]
  - Vaginal discharge [Recovered/Resolved]
  - Abdominal pain [Recovered/Resolved]

NARRATIVE: CASE EVENT DATE: 20150102
